FAERS Safety Report 6371905-X (Version None)
Quarter: 2009Q3

REPORT INFORMATION
  Report Type: 
  Country: None (occurrence: None)
  Receive Date: 20090918
  Receipt Date: 20090918
  Transmission Date: 20100115
  Serious: Yes (Hospitalization)
  Sender: FDA-Public Use
  Company Number: None

PATIENT
  Sex: Male
  Weight: 136 kg

DRUGS (12)
  1. VANCOMYCIN HCL [Suspect]
     Indication: CELLULITIS
     Dosage: 1 GRAM IV, 2 DOSES
     Route: 042
     Dates: start: 20090601, end: 20090602
  2. VANCOMYCIN HCL [Suspect]
     Indication: OSTEOMYELITIS
     Dosage: 1 GRAM IV, 2 DOSES
     Route: 042
     Dates: start: 20090601, end: 20090602
  3. PIPERACILLIN/TAZOBACTAM [Concomitant]
  4. SIMVASTATIN [Concomitant]
  5. LISINOPRIL [Concomitant]
  6. ALPRAZOLAM [Concomitant]
  7. METOCLOPRAMIDE [Concomitant]
  8. NITROGLYN 2% OINTMENT [Concomitant]
  9. ENOXAPARIN [Concomitant]
  10. APAP W/ CODEINE [Concomitant]
  11. ASPIRIN [Concomitant]
  12. METOPROLOL [Concomitant]

REACTIONS (4)
  - CELLULITIS [None]
  - MYOCARDIAL INFARCTION [None]
  - SKIN ULCER [None]
  - THROMBOCYTOPENIA [None]
